FAERS Safety Report 4892463-2 (Version None)
Quarter: 2006Q1

REPORT INFORMATION
  Report Type: 
  Country: None (occurrence: None)
  Receive Date: 20060126
  Receipt Date: 20050201
  Transmission Date: 20060701
  Serious: No
  Sender: FDA-Public Use
  Company Number: US-BRISTOL-MYERS SQUIBB COMPANY-12843777

PATIENT
  Age: 34 Year
  Sex: Female
  Weight: 51 kg

DRUGS (5)
  1. CEFZIL [Suspect]
     Indication: SINUSITIS
     Route: 048
     Dates: start: 20050124
  2. LAMICTAL [Concomitant]
  3. CONCERTA [Concomitant]
  4. YASMIN [Concomitant]
  5. VALTREX [Concomitant]
     Dates: start: 20050124, end: 20050126

REACTIONS (3)
  - ARTHRALGIA [None]
  - FLUID RETENTION [None]
  - PRURITUS [None]
